FAERS Safety Report 5851785-9 (Version None)
Quarter: 2008Q3

REPORT INFORMATION
  Report Type: 
  Country: None (occurrence: None)
  Receive Date: 20080811
  Receipt Date: 20080528
  Transmission Date: 20090109
  Serious: Yes (Hospitalization)
  Sender: FDA-Public Use
  Company Number: 200812294US

PATIENT
  Age: 51 Year
  Sex: Female
  Weight: 104.33 kg

DRUGS (10)
  1. APIDRA [Suspect]
     Indication: TYPE 2 DIABETES MELLITUS
     Dosage: 8 U QD SC
     Route: 058
     Dates: start: 20080228, end: 20080430
  2. LANTUS [Concomitant]
  3. HYDROCHLOROTHIAZIDE [Concomitant]
  4. GABAPENTIN [Concomitant]
  5. AMLODIPINE (NORVASC /00972401/) [Concomitant]
  6. COZAAR [Concomitant]
  7. METOPROLOL TARTRATE [Concomitant]
  8. PARACETAMOL, HYDROCODONE BITARTRATE (LORTAB /00607101/) [Concomitant]
  9. DIOVAN [Concomitant]
  10. REGULAR INSULIN [Concomitant]

REACTIONS (10)
  - ABDOMINAL PAIN UPPER [None]
  - BLADDER DISORDER [None]
  - BLOOD PRESSURE INCREASED [None]
  - COUGH [None]
  - DIARRHOEA [None]
  - DYSPNOEA [None]
  - HYPERSENSITIVITY [None]
  - OEDEMA PERIPHERAL [None]
  - PRURITUS [None]
  - URTICARIA [None]
